FAERS Safety Report 9055458 (Version 1)
Quarter: 2013Q1

REPORT INFORMATION
  Report Type: Spontaneous
  Country: US (occurrence: US)
  Receive Date: 20130206
  Receipt Date: 20130206
  Transmission Date: 20140127
  Serious: No
  Sender: FDA-Public Use
  Company Number: US-ASTRAZENECA-2013SE03197

PATIENT
  Age: 47 Year
  Sex: Female

DRUGS (3)
  1. SEROQUEL [Suspect]
     Indication: PSYCHOTIC DISORDER
     Route: 048
     Dates: end: 2009
  2. SEROQUEL [Suspect]
     Indication: PSYCHOTIC DISORDER
     Route: 048
     Dates: end: 2009
  3. SEROQUEL [Suspect]
     Indication: PSYCHOTIC DISORDER
     Dosage: QUETIAPINE FUMARATE TITRATED DOWN FROM 650 MG
     Route: 048

REACTIONS (4)
  - Feeling abnormal [Unknown]
  - Abdominal distension [Unknown]
  - Autoimmune disorder [Unknown]
  - Hypersensitivity [Unknown]
